FAERS Safety Report 7926695-3 (Version None)
Quarter: 2011Q4

REPORT INFORMATION
  Report Type: 
  Country: None (occurrence: None)
  Receive Date: 20111118
  Receipt Date: 20111114
  Transmission Date: 20120403
  Serious: No
  Sender: FDA-Public Use
  Company Number: US-PFIZER INC-2011220464

PATIENT
  Sex: Female
  Weight: 74.83 kg

DRUGS (4)
  1. CLINDAMYCIN HCL [Suspect]
     Indication: PLASTIC SURGERY
     Dosage: 300 MG, 4X/DAY
     Dates: start: 20110907, end: 20110915
  2. VITAMIN D [Concomitant]
     Dosage: UNK
  3. ACETAMINOPHEN [Concomitant]
     Dosage: UNK,AS NEEDED
  4. LEVOTHYROXINE [Concomitant]
     Indication: HYPOTHYROIDISM
     Dosage: 15 UG, DAILY

REACTIONS (2)
  - SOMNOLENCE [None]
  - ROAD TRAFFIC ACCIDENT [None]
